FAERS Safety Report 20454594 (Version 1)
Quarter: 2022Q1

REPORT INFORMATION
  Report Type: Spontaneous
  Country: PT (occurrence: PT)
  Receive Date: 20220210
  Receipt Date: 20220210
  Transmission Date: 20220423
  Serious: Yes (Other)
  Sender: FDA-Public Use
  Company Number: None

PATIENT
  Age: 69 Year
  Sex: Male

DRUGS (8)
  1. LINEZOLID [Suspect]
     Active Substance: LINEZOLID
     Indication: Rhodococcus infection
     Dosage: UNK
     Route: 065
     Dates: start: 201804, end: 201807
  2. LINEZOLID [Suspect]
     Active Substance: LINEZOLID
     Indication: Brain abscess
  3. ENTECAVIR [Concomitant]
     Active Substance: ENTECAVIR
     Indication: Chronic hepatitis B
     Dosage: UNK
     Route: 065
  4. ERTAPENEM [Concomitant]
     Active Substance: ERTAPENEM
     Indication: Rhodococcus infection
     Dosage: UNK
     Route: 065
     Dates: start: 201804
  5. ERTAPENEM [Concomitant]
     Active Substance: ERTAPENEM
     Indication: Brain abscess
  6. GENTAMICIN [Concomitant]
     Active Substance: GENTAMICIN
     Indication: Rhodococcus infection
     Dosage: UNK
     Route: 065
  7. GENTAMICIN [Concomitant]
     Active Substance: GENTAMICIN
     Indication: Brain abscess
  8. LEVOTHYROXINE [Concomitant]
     Active Substance: LEVOTHYROXINE
     Indication: Hypothyroidism
     Dosage: UNK
     Route: 065

REACTIONS (1)
  - Myelosuppression [Unknown]

NARRATIVE: CASE EVENT DATE: 20180701
